FAERS Safety Report 12981211 (Version 1)
Quarter: 2016Q4

REPORT INFORMATION
  Report Type: Spontaneous
  Country: US (occurrence: US)
  Receive Date: 20161129
  Receipt Date: 20161129
  Transmission Date: 20170207
  Serious: No
  Sender: FDA-Public Use
  Company Number: US-TWI PHARMACEUTICAL, INC-2016SCTW000012

PATIENT

DRUGS (9)
  1. GUANFACINE. [Suspect]
     Active Substance: GUANFACINE
     Indication: ATTENTION DEFICIT/HYPERACTIVITY DISORDER
     Dosage: 1 DF, OD
     Route: 048
     Dates: start: 20160909
  2. GUANFACINE HYDROCHLORIDE. [Suspect]
     Active Substance: GUANFACINE HYDROCHLORIDE
     Indication: ATTENTION DEFICIT/HYPERACTIVITY DISORDER
     Dosage: 2 MG IN MORNING AND 1 MG IN AFTERNOON
     Route: 048
     Dates: start: 20160829
  3. TRAZODON [Suspect]
     Active Substance: TRAZODONE HYDROCHLORIDE
     Indication: SLEEP DISORDER
     Dosage: 1 DF, HS
     Route: 048
     Dates: start: 2015
  4. GUANFACINE HYDROCHLORIDE. [Suspect]
     Active Substance: GUANFACINE HYDROCHLORIDE
     Dosage: UNK, UNKNOWN, 1 MG/5 ML
     Route: 048
  5. QUILLIVANT XR [Suspect]
     Active Substance: METHYLPHENIDATE HYDROCHLORIDE
     Dosage: 6 ML, BID
     Route: 048
     Dates: start: 2014
  6. RISPERIDONE. [Concomitant]
     Active Substance: RISPERIDONE
     Indication: PRODUCT USED FOR UNKNOWN INDICATION
     Dosage: 0.5 ML, UNKNOWN
     Route: 065
     Dates: start: 2015
  7. QUILLIVANT XR [Suspect]
     Active Substance: METHYLPHENIDATE HYDROCHLORIDE
     Dosage: 12 ML, DAILY
     Route: 048
     Dates: start: 20160919
  8. GUANFACINE. [Suspect]
     Active Substance: GUANFACINE
     Indication: ATTENTION DEFICIT/HYPERACTIVITY DISORDER
     Dosage: 1 DF, SINGLE
     Route: 048
     Dates: start: 20160914
  9. QUILLIVANT XR [Suspect]
     Active Substance: METHYLPHENIDATE HYDROCHLORIDE
     Indication: ATTENTION DEFICIT/HYPERACTIVITY DISORDER
     Dosage: 6 ML, DAILY, IN THE MORNING
     Route: 048
     Dates: start: 2014

REACTIONS (4)
  - Somnolence [Unknown]
  - Mood swings [Unknown]
  - Drug ineffective [Unknown]
  - Product quality issue [Unknown]
